FAERS Safety Report 8249738-9 (Version None)
Quarter: 2012Q1

REPORT INFORMATION
  Report Type: 
  Country: None (occurrence: None)
  Receive Date: 20120316
  Receipt Date: 20110329
  Transmission Date: 20120608
  Serious: Yes (Other)
  Sender: FDA-Public Use
  Company Number: PHHY2011US21644

PATIENT
  Age: 71 Year
  Sex: Female
  Weight: 87 kg

DRUGS (6)
  1. SIMVASTATIN [Concomitant]
  2. TEKTURNA [Suspect]
     Indication: HYPERTENSION
     Dosage: 150 MG, ORAL
     Route: 048
     Dates: end: 20101225
  3. PANTOPRAZOLE [Concomitant]
  4. CARVEDILOL [Concomitant]
  5. PEPCID AC [Concomitant]
  6. ISOSORBIDE MN (ISOSORBIDE MONONITRATE) [Concomitant]

REACTIONS (1)
  - ANGIOEDEMA [None]
